FAERS Safety Report 6058196-4 (Version None)
Quarter: 2009Q1

REPORT INFORMATION
  Report Type: 
  Country: None (occurrence: None)
  Receive Date: 20090130
  Receipt Date: 20090119
  Transmission Date: 20090719
  Serious: Yes (Other)
  Sender: FDA-Public Use
  Company Number: US-PFIZER INC-2009158361

PATIENT
  Age: 45 Year
  Sex: Female
  Weight: 137 kg

DRUGS (15)
  1. ERAXIS [Suspect]
     Dosage: 200 MG, 1X/DAY
     Dates: start: 20090116
  2. ZYVOX [Suspect]
     Dosage: 600 MG, 2X/DAY
     Dates: start: 20090116
  3. FLAGYL [Suspect]
     Dosage: 250 MG, 4X/DAY
     Dates: start: 20090117
  4. MERREM [Concomitant]
  5. MORPHINE HYDROCHLORIDE [Concomitant]
  6. MAGNESIUM SULFATE [Concomitant]
  7. CLONIDINE [Concomitant]
  8. LOVENOX [Concomitant]
  9. ATROVENT [Concomitant]
  10. PROTONIX [Concomitant]
  11. NEOSYNEPHRINE [Concomitant]
  12. LEVOPHED [Concomitant]
  13. SODIUM NITROPRUSSIDE [Concomitant]
  14. TYLENOL [Concomitant]
  15. POTASSIUM CHLORIDE [Concomitant]

REACTIONS (1)
  - LIVER FUNCTION TEST ABNORMAL [None]
